FAERS Safety Report 26191559 (Version 1)
Quarter: 2025Q4

REPORT INFORMATION
  Report Type: Spontaneous
  Country: US (occurrence: US)
  Receive Date: 20251223
  Receipt Date: 20251223
  Transmission Date: 20260117
  Serious: Yes (Other)
  Sender: BAYER HEALTHCARE PHARMACEUTICALS INC.
  Company Number: US-BAYER-2025A166300

PATIENT
  Age: 77 Year
  Sex: Female

DRUGS (3)
  1. STIVARGA [Suspect]
     Active Substance: REGORAFENIB MONOHYDRATE
     Indication: Hepatocellular carcinoma
     Dosage: UNK
     Dates: start: 2025
  2. FLUCONAZOLE [Concomitant]
     Active Substance: FLUCONAZOLE
  3. LEVOFLOXACIN [Concomitant]
     Active Substance: LEVOFLOXACIN

REACTIONS (2)
  - Haemophagocytic lymphohistiocytosis [None]
  - SJS-TEN overlap [None]

NARRATIVE: CASE EVENT DATE: 20250101
